FAERS Safety Report 13954766 (Version 1)
Quarter: 2017Q3

REPORT INFORMATION
  Report Type: Spontaneous
  Country: US (occurrence: None)
  Receive Date: 20170911
  Receipt Date: 20170911
  Transmission Date: 20171128
  Serious: No
  Sender: FDA-Public Use
  Company Number: None

PATIENT
  Age: 47 Year
  Sex: Female

DRUGS (1)
  1. REBIF [Suspect]
     Active Substance: INTERFERON BETA-1A
     Indication: MULTIPLE SCLEROSIS
     Dosage: 44 MCG ON MONDAY, WEDNESDAY SQ
     Route: 058
     Dates: start: 201610

REACTIONS (3)
  - Middle insomnia [None]
  - Drug dose omission [None]
  - Pyrexia [None]

NARRATIVE: CASE EVENT DATE: 20170911
